FAERS Safety Report 15603505 (Version 1)
Quarter: 2018Q4

REPORT INFORMATION
  Report Type: Spontaneous
  Country: ES (occurrence: ES)
  Receive Date: 20181109
  Receipt Date: 20181109
  Transmission Date: 20190205
  Serious: Yes (Hospitalization)
  Sender: FDA-Public Use
  Company Number: ES-FRESENIUS KABI-FK201811519

PATIENT
  Age: 55 Year
  Sex: Female

DRUGS (2)
  1. DEFLAZACORT [Concomitant]
     Active Substance: DEFLAZACORT
     Indication: EVIDENCE BASED TREATMENT
     Dosage: UNKNOWN
     Route: 065
  2. METHYLPREDNISOLONE (MANUFACTURER UNKNOWN) [Suspect]
     Active Substance: METHYLPREDNISOLONE
     Indication: EVIDENCE BASED TREATMENT
     Dosage: 500 MG/24 HOURS (TOTAL ACCUMULATED DOSE OF 3,5G)
     Route: 042

REACTIONS (1)
  - Hepatitis acute [Recovered/Resolved]
